FAERS Safety Report 25581704 (Version 3)
Quarter: 2025Q4

REPORT INFORMATION
  Report Type: Report from Study
  Country: US (occurrence: US)
  Receive Date: 20250719
  Receipt Date: 20251222
  Transmission Date: 20260117
  Serious: No
  Sender: SANDOZ
  Company Number: US-SANDOZ-SDZ2025US046240

PATIENT
  Sex: Female

DRUGS (2)
  1. GLATOPA [Suspect]
     Active Substance: GLATIRAMER ACETATE
     Indication: Product used for unknown indication
     Dosage: UNK
  2. GLATOPA [Suspect]
     Active Substance: GLATIRAMER ACETATE

REACTIONS (2)
  - Circumstance or information capable of leading to medication error [Unknown]
  - Device delivery system issue [Unknown]
